FAERS Safety Report 7002591-3 (Version None)
Quarter: 2010Q3

REPORT INFORMATION
  Report Type: 
  Country: None (occurrence: None)
  Receive Date: 20100920
  Receipt Date: 20100913
  Transmission Date: 20110219
  Serious: Yes (Death)
  Sender: FDA-Public Use
  Company Number: US-GILEAD-2010-0031801

PATIENT
  Sex: Female
  Weight: 62.652 kg

DRUGS (15)
  1. LETAIRIS [Suspect]
     Indication: PULMONARY ARTERIAL HYPERTENSION
     Route: 048
     Dates: start: 20100609
  2. FUROSEMIDE [Concomitant]
  3. ASPIRIN [Concomitant]
  4. PULMICORT [Concomitant]
  5. CARAFATE [Concomitant]
  6. BUMETANIDE [Concomitant]
  7. KLOR-CON [Concomitant]
  8. ALPRAZOLAM [Concomitant]
  9. PREDNISONE [Concomitant]
  10. CLARITIN [Concomitant]
  11. AFRIN [Concomitant]
  12. ZANTAC [Concomitant]
  13. MAXI-VITE [Concomitant]
  14. HYDROCORTISONE [Concomitant]
  15. BROVAN [Concomitant]

REACTIONS (1)
  - DEATH [None]
